FAERS Safety Report 20100964 (Version 1)
Quarter: 2021Q4

REPORT INFORMATION
  Report Type: Spontaneous
  Country: US (occurrence: None)
  Receive Date: 20211122
  Receipt Date: 20211122
  Transmission Date: 20220303
  Serious: Yes (Other)
  Sender: FDA-Public Use
  Company Number: None

PATIENT
  Age: 65 Year
  Sex: Male
  Weight: 89.1 kg

DRUGS (11)
  1. ALUNBRIG [Suspect]
     Active Substance: BRIGATINIB
     Dosage: FREQUENCY : DAILY;?
     Route: 048
  2. ASPIRIN [Concomitant]
     Active Substance: ASPIRIN
  3. coreg 3.125 mg [Concomitant]
  4. INSPRA [Concomitant]
     Active Substance: EPLERENONE
  5. GLIPIZIDE [Concomitant]
     Active Substance: GLIPIZIDE
  6. LOSARTAN [Concomitant]
     Active Substance: LOSARTAN
  7. nitroglycerin 0.4mg [Concomitant]
  8. OMEPRAZOLE [Concomitant]
     Active Substance: OMEPRAZOLE
  9. ONDANSETRON [Concomitant]
     Active Substance: ONDANSETRON
  10. ROSUVASTATIN [Concomitant]
     Active Substance: ROSUVASTATIN
  11. SILVER SULFADIAZINE [Concomitant]
     Active Substance: SILVER SULFADIAZINE

REACTIONS (1)
  - Pancreatic disorder [None]
